FAERS Safety Report 9452305 (Version 1)
Quarter: 2013Q3

REPORT INFORMATION
  Report Type: Spontaneous
  Country: US (occurrence: None)
  Receive Date: 20130808
  Receipt Date: 20130808
  Transmission Date: 20140515
  Serious: No
  Sender: FDA-Public Use
  Company Number: None

PATIENT
  Age: 67 Year
  Sex: Female

DRUGS (1)
  1. AFINITOR [Suspect]
     Dosage: 5 MG QD PO
     Route: 048
     Dates: start: 20130613, end: 20130714

REACTIONS (2)
  - Rash [None]
  - Colitis [None]
